FAERS Safety Report 7769078-1 (Version None)
Quarter: 2011Q3

REPORT INFORMATION
  Report Type: 
  Country: None (occurrence: None)
  Receive Date: 20110922
  Receipt Date: 20100113
  Transmission Date: 20111222
  Serious: No
  Sender: FDA-Public Use
  Company Number: US-ASTRAZENECA-2010SE29580

PATIENT
  Age: 13264 Day
  Sex: Female

DRUGS (5)
  1. SEROQUEL [Suspect]
     Indication: HALLUCINATION, AUDITORY
     Dosage: TAKE 1 TABLET IN THE MORNING AND 2 TABLETS IN THE EVENING
     Route: 048
     Dates: start: 20000811
  2. EFFEXOR XR [Concomitant]
     Dosage: TAKE 1 CAPSULE IN THE MORNING AND 2 CAPSULES AT BEDTIME
     Dates: start: 20000811
  3. LITHIUM CARBONA [Concomitant]
     Dates: start: 20000811
  4. EFFEXOR XR [Concomitant]
     Indication: DEPRESSION
     Dosage: TAKE 1 TABLET IN THE MORNING AND 2 TABLETS IN EVENING
     Route: 048
     Dates: start: 20000219
  5. SEROQUEL [Suspect]
     Dosage: TAKE 1 TABLET IN THE MORNING AND 2 TABLETS IN THE EVENING
     Route: 048
     Dates: start: 20001113

REACTIONS (4)
  - HYPERTENSION [None]
  - RHINITIS [None]
  - DIABETES MELLITUS [None]
  - OTITIS MEDIA [None]
